FAERS Safety Report 11301380 (Version 1)
Quarter: 2015Q3

REPORT INFORMATION
  Report Type: Spontaneous
  Country: US (occurrence: US)
  Receive Date: 20150722
  Receipt Date: 20150722
  Transmission Date: 20151125
  Serious: No
  Sender: FDA-Public Use
  Company Number: US-ELI_LILLY_AND_COMPANY-US201003004842

PATIENT
  Age: 43 Year
  Sex: Male

DRUGS (7)
  1. TESTOSTERONE. [Concomitant]
     Active Substance: TESTOSTERONE
  2. FENTANYL. [Concomitant]
     Active Substance: FENTANYL
     Dosage: 12 UG, 2/W
  3. HYDROCODONE [Concomitant]
     Active Substance: HYDROCODONE
  4. IBUPROFEN. [Concomitant]
     Active Substance: IBUPROFEN
  5. HUMATROPE [Suspect]
     Active Substance: SOMATROPIN
     Dosage: 0.2 MG, DAILY (1/D)
     Dates: start: 200611
  6. HYDROCORTISONE. [Concomitant]
     Active Substance: HYDROCORTISONE
  7. SYNTHROID [Concomitant]
     Active Substance: LEVOTHYROXINE SODIUM

REACTIONS (4)
  - Drug dose omission [Recovered/Resolved]
  - Visual acuity reduced [Not Recovered/Not Resolved]
  - Gingival pain [Not Recovered/Not Resolved]
  - Gingival recession [Not Recovered/Not Resolved]

NARRATIVE: CASE EVENT DATE: 201002
